FAERS Safety Report 6551618-1 (Version None)
Quarter: 2010Q1

REPORT INFORMATION
  Report Type: 
  Country: None (occurrence: None)
  Receive Date: 20100126
  Receipt Date: 20100112
  Transmission Date: 20100710
  Serious: Yes (Hospitalization)
  Sender: FDA-Public Use
  Company Number: FR-KINGPHARMUSA00001-K201000036

PATIENT
  Age: 74 Year
  Sex: Female

DRUGS (7)
  1. ALTACE [Suspect]
     Indication: HYPERTENSION
     Dosage: 1 DF, QD
     Route: 048
  2. ACETYLSALICYLIC ACID [Suspect]
     Indication: CORONARY ARTERY DISEASE
     Dosage: 100 MG, QD
     Route: 048
     Dates: start: 19980101
  3. BISOPROLOL FUMARATE [Suspect]
     Indication: HYPERTENSION
     Dosage: 5 MG, QD
     Route: 048
  4. SEROQUEL [Suspect]
     Indication: SCHIZOPHRENIA
     Dosage: 50 MG, BID
     Route: 048
     Dates: start: 20090201
  5. TREVILOR [Suspect]
     Indication: DEPRESSION
     Dosage: 75 MG, BID
     Route: 048
     Dates: start: 20090201
  6. SIMVASTATIN [Suspect]
     Indication: HYPERCHOLESTEROLAEMIA
     Dosage: 40 MG, QD
     Route: 048
  7. ZOPICLONE [Concomitant]
     Indication: SLEEP DISORDER
     Dosage: UNK
     Dates: start: 20070101

REACTIONS (6)
  - ATRIOVENTRICULAR BLOCK [None]
  - CARDIAC VALVE DISEASE [None]
  - DIABETES MELLITUS [None]
  - HEPATIC NEOPLASM [None]
  - HYPERGLYCAEMIA [None]
  - LIVER FUNCTION TEST ABNORMAL [None]
